FAERS Safety Report 8215822-9 (Version None)
Quarter: 2012Q1

REPORT INFORMATION
  Report Type: 
  Country: None (occurrence: None)
  Receive Date: 20120313
  Receipt Date: 20120305
  Transmission Date: 20120608
  Serious: Yes (Other)
  Sender: FDA-Public Use
  Company Number: 2012MA002916

PATIENT
  Sex: Male

DRUGS (2)
  1. CLONAZEPAM [Suspect]
  2. LORAZEPAM [Suspect]

REACTIONS (1)
  - PRODUCT COMMINGLING [None]
